FAERS Safety Report 10025672 (Version 7)
Quarter: 2015Q2

REPORT INFORMATION
  Report Type: Spontaneous
  Country: US (occurrence: None)
  Receive Date: 20140318
  Receipt Date: 20150608
  Transmission Date: 20150821
  Serious: Yes (Other)
  Sender: FDA-Public Use
  Company Number: KAD201403-000308

PATIENT
  Age: 36 Year
  Sex: Female

DRUGS (5)
  1. TDAP (COMBINED TETANUS, DIPHTHERIA AND PERTUSSIS VACCINES) [Concomitant]
  2. IRON (IRON) [Concomitant]
     Active Substance: IRON
  3. RIBASPHERE RIBAPAK [Suspect]
     Active Substance: RIBAVIRIN
     Indication: HEPATITIS C
     Route: 048
     Dates: start: 20130701, end: 20130702
  4. PROPYLTHIOURACIL. [Concomitant]
     Active Substance: PROPYLTHIOURACIL
  5. PEGASYS [Suspect]
     Active Substance: PEGINTERFERON ALFA-2A
     Indication: HEPATITIS C
     Dosage: 180 MCG,/WEEK, SUBCUTANEOUS
     Route: 058
     Dates: start: 20130624, end: 20130702

REACTIONS (6)
  - Maternal exposure during pregnancy [None]
  - Foetal growth restriction [None]
  - Hypospadias [None]
  - Congenital anomaly in offspring [None]
  - Hypothyroidism [None]
  - Hyperthyroidism [None]

NARRATIVE: CASE EVENT DATE: 201309
